FAERS Safety Report 24172380 (Version 1)
Quarter: 2024Q3

REPORT INFORMATION
  Report Type: Report from Study
  Country: IT (occurrence: IT)
  Receive Date: 20240805
  Receipt Date: 20240805
  Transmission Date: 20241017
  Serious: Yes (Death, Other)
  Sender: ROCHE
  Company Number: IT-ROCHE-10000032676

PATIENT

DRUGS (9)
  1. ATEZOLIZUMAB [Suspect]
     Active Substance: ATEZOLIZUMAB
     Indication: Neoplasm malignant
     Route: 065
  2. BEVACIZUMAB [Suspect]
     Active Substance: BEVACIZUMAB
     Indication: Neoplasm malignant
     Route: 065
  3. IPILIMUMAB [Suspect]
     Active Substance: IPILIMUMAB
     Indication: Neoplasm malignant
     Route: 065
  4. NIVOLUMAB [Suspect]
     Active Substance: NIVOLUMAB
     Indication: Neoplasm malignant
     Route: 065
  5. PEMBROLIZUMAB [Suspect]
     Active Substance: PEMBROLIZUMAB
     Indication: Neoplasm malignant
     Route: 065
  6. PEMETREXED [Suspect]
     Active Substance: PEMETREXED
     Indication: Neoplasm malignant
     Route: 065
  7. AXITINIB [Suspect]
     Active Substance: AXITINIB
     Indication: Neoplasm malignant
     Route: 065
  8. OLAPARIB [Suspect]
     Active Substance: OLAPARIB
     Indication: Neoplasm malignant
     Route: 065
  9. FAVEZELIMAB [Suspect]
     Active Substance: FAVEZELIMAB
     Indication: Neoplasm malignant
     Route: 065

REACTIONS (8)
  - Immune-mediated enterocolitis [Fatal]
  - Septic shock [Fatal]
  - Autoimmune thyroid disorder [Unknown]
  - Hypophysitis [Unknown]
  - Autoimmune hepatitis [Unknown]
  - Adrenalitis [Unknown]
  - Dermatitis [Unknown]
  - Interstitial lung disease [Unknown]
